FAERS Safety Report 20815091 (Version 1)
Quarter: 2022Q2

REPORT INFORMATION
  Report Type: Spontaneous
  Country: US (occurrence: None)
  Receive Date: 20220511
  Receipt Date: 20220511
  Transmission Date: 20220721
  Serious: Yes (Hospitalization)
  Sender: FDA-Public Use
  Company Number: None

PATIENT
  Age: 60 Year
  Sex: Female

DRUGS (1)
  1. ACTEMRA [Suspect]
     Active Substance: TOCILIZUMAB
     Dosage: FREQUENCY : MONTHLY;?
     Route: 042

REACTIONS (5)
  - Abdominal pain [None]
  - Diarrhoea [None]
  - Nausea [None]
  - Gastrointestinal oedema [None]
  - Pancreatic enzymes increased [None]

NARRATIVE: CASE EVENT DATE: 20220504
